FAERS Safety Report 19855721 (Version 1)
Quarter: 2021Q3

REPORT INFORMATION
  Report Type: Spontaneous
  Country: NL (occurrence: NL)
  Receive Date: 20210920
  Receipt Date: 20210920
  Transmission Date: 20211014
  Serious: Yes (Disabling)
  Sender: FDA-Public Use
  Company Number: None

PATIENT
  Age: 29 Year
  Sex: Female
  Weight: 174 kg

DRUGS (2)
  1. EMOVATE ? CLOBETASON 17 BUTYRATE [Suspect]
     Active Substance: CLOBETASONE BUTYRATE
     Indication: ECZEMA
     Route: 061
  2. CUTIVATE ? FLUTICASONPROPIONATE [Suspect]
     Active Substance: FLUTICASONE PROPIONATE
     Indication: ECZEMA
     Dosage: ?          QUANTITY:4 FTU;OTHER FREQUENCY:DAILY, 4 D/ A WEEK;?
     Route: 061

REACTIONS (1)
  - Steroid withdrawal syndrome [None]

NARRATIVE: CASE EVENT DATE: 20190101
